FAERS Safety Report 26218340 (Version 1)
Quarter: 2025Q4

REPORT INFORMATION
  Report Type: Spontaneous
  Country: EU (occurrence: EU)
  Receive Date: 20251231
  Receipt Date: 20251231
  Transmission Date: 20260118
  Serious: Yes (Hospitalization)
  Sender: PFIZER
  Company Number: EU-GLAXOSMITHKLINE-FR2021GSK000096

PATIENT
  Age: 60 Year
  Sex: Female
  Weight: 77 kg

DRUGS (16)
  1. PACLITAXEL [Suspect]
     Active Substance: PACLITAXEL
     Indication: Ovarian cancer
     Dosage: 329 MG
     Route: 042
     Dates: start: 20200928
  2. PACLITAXEL [Suspect]
     Active Substance: PACLITAXEL
     Dosage: 328.8 MG
     Route: 042
     Dates: start: 20201019
  3. PACLITAXEL [Suspect]
     Active Substance: PACLITAXEL
     Dosage: 288 MG
     Route: 042
     Dates: start: 20201109
  4. PACLITAXEL [Suspect]
     Active Substance: PACLITAXEL
     Dosage: 234 MG
     Route: 042
     Dates: start: 20201130
  5. PACLITAXEL [Suspect]
     Active Substance: PACLITAXEL
     Dosage: 223 MG
     Route: 042
     Dates: start: 20210401
  6. PACLITAXEL [Suspect]
     Active Substance: PACLITAXEL
     Dosage: 222 MG
     Route: 042
     Dates: start: 20210429
  7. BEVACIZUMAB [Suspect]
     Active Substance: BEVACIZUMAB
     Indication: Ovarian cancer
     Dosage: 540 MG
     Route: 042
     Dates: start: 20210521
  8. BEVACIZUMAB [Suspect]
     Active Substance: BEVACIZUMAB
     Dosage: 550 MG
     Route: 042
     Dates: start: 20210611, end: 20210611
  9. CARBOPLATIN [Suspect]
     Active Substance: CARBOPLATIN
     Indication: Ovarian cancer
     Dosage: 543 MG
     Route: 042
     Dates: start: 20200928
  10. CARBOPLATIN [Suspect]
     Active Substance: CARBOPLATIN
     Dosage: 666 MG
     Route: 042
     Dates: start: 20201109
  11. CARBOPLATIN [Suspect]
     Active Substance: CARBOPLATIN
     Dosage: 680 MG
     Route: 042
     Dates: start: 20201130
  12. CARBOPLATIN [Suspect]
     Active Substance: CARBOPLATIN
     Dosage: 623 MG
     Route: 042
     Dates: start: 20210401
  13. CARBOPLATIN [Suspect]
     Active Substance: CARBOPLATIN
     Dosage: 570 MG
     Route: 042
     Dates: start: 20210429
  14. DOSTARLIMAB [Suspect]
     Active Substance: DOSTARLIMAB
     Indication: Ovarian cancer
     Dosage: UNK
     Dates: start: 20201019
  15. DOSTARLIMAB [Suspect]
     Active Substance: DOSTARLIMAB
     Dosage: UNK
     Dates: start: 20210521
  16. VALACYCLOVIR HYDROCHLORIDE [Concomitant]
     Active Substance: VALACYCLOVIR HYDROCHLORIDE
     Indication: Herpes zoster
     Dosage: 500 MG, QD
     Route: 048
     Dates: start: 20210521

REACTIONS (3)
  - Pulmonary embolism [Recovered/Resolved]
  - Off label use [Unknown]
  - Product use issue [Unknown]

NARRATIVE: CASE EVENT DATE: 20200928
